FAERS Safety Report 9039071 (Version 2)
Quarter: 2013Q2

REPORT INFORMATION
  Report Type: Spontaneous
  Country: US (occurrence: None)
  Receive Date: 20120525
  Receipt Date: 20120827
  Transmission Date: 20140414
  Serious: Yes (Other)
  Sender: FDA-Public Use
  Company Number: 346047

PATIENT
  Age: 53 Year
  Sex: Male
  Weight: 156.5 kg

DRUGS (11)
  1. VICTOZA [Suspect]
     Indication: TYPE 2 DIABETES MELLITUS
     Route: 058
     Dates: start: 20111214, end: 201112
  2. ALBUTEROL (00139501) (SALBUTAMOL) [Concomitant]
  3. ASPIRIN (ACETYLSALICYLIC ACID) [Concomitant]
  4. COENZYME Q10 (UBIDECARENONE) [Concomitant]
  5. FISH OIL (FISH OIL) [Concomitant]
  6. HUMALOG (INSULIN LISPRO) [Concomitant]
  7. LANTUS (INSULIN GLARGINE) [Concomitant]
  8. LISINOPRIL (LISINOPRIL) [Concomitant]
  9. METFORMIN (METFORMIN) [Concomitant]
  10. METOPROLOL (METOPROLOL) [Concomitant]
  11. MULTIVITAMIN (00097801) (ASCORBIC ACID, CALCIUM PANTOTHENATE, ERGOCALCIFEROL, NICOTINAMIDE, PYRIDOXINE HYDROCHLORIDE, RETINOL, RIBOFLAVIN, THIAMINE HYDROCHLORIDE) [Concomitant]

REACTIONS (5)
  - Pancreatitis [None]
  - Erectile dysfunction [None]
  - Weight increased [None]
  - Urinary tract infection [None]
  - Blood glucose increased [None]
